APPROVED DRUG PRODUCT: DDAVP
Active Ingredient: DESMOPRESSIN ACETATE
Strength: 0.015MG/ML
Dosage Form/Route: INJECTABLE;INJECTION
Application: N018938 | Product #002
Applicant: NORDIC PHARMA INC
Approved: Apr 25, 1995 | RLD: No | RS: No | Type: DISCN